FAERS Safety Report 11692718 (Version 1)
Quarter: 2015Q4

REPORT INFORMATION
  Report Type: Spontaneous
  Country: US (occurrence: US)
  Receive Date: 20151103
  Receipt Date: 20151103
  Transmission Date: 20160304
  Serious: No
  Sender: FDA-Public Use
  Company Number: US-ENDO PHARMACEUTICALS INC.-2015-002156

PATIENT
  Sex: Male

DRUGS (1)
  1. VANTAS [Suspect]
     Active Substance: HISTRELIN ACETATE
     Indication: NEOPLASM MALIGNANT
     Route: 065
     Dates: start: 2006

REACTIONS (2)
  - Complication of device removal [Unknown]
  - Incorrect drug administration duration [Unknown]
